FAERS Safety Report 7352233-2 (Version None)
Quarter: 2011Q1

REPORT INFORMATION
  Report Type: 
  Country: None (occurrence: None)
  Receive Date: 20110315
  Receipt Date: 20110307
  Transmission Date: 20110831
  Serious: Yes (Hospitalization)
  Sender: FDA-Public Use
  Company Number: DE-BAYER-2011-020882

PATIENT
  Sex: Female
  Weight: 67 kg

DRUGS (2)
  1. PACLITAXEL [Suspect]
     Indication: BREAST CANCER
     Dosage: 80 MG/M2, OW
     Route: 042
     Dates: start: 20110210, end: 20110210
  2. SORAFENIB (RAF KINASE INHIBITOR) [Suspect]
     Indication: BREAST CANCER
     Dosage: 600 MG, UNK
     Route: 048
     Dates: start: 20110210, end: 20110210

REACTIONS (1)
  - PULMONARY EMBOLISM [None]
